FAERS Safety Report 20348062 (Version 1)
Quarter: 2022Q1

REPORT INFORMATION
  Report Type: Spontaneous
  Country: US (occurrence: US)
  Receive Date: 20220118
  Receipt Date: 20220118
  Transmission Date: 20220424
  Serious: Yes (Other)
  Sender: FDA-Public Use
  Company Number: US-STRIDES ARCOLAB LIMITED-2022SP000395

PATIENT

DRUGS (2)
  1. RANITIDINE [Suspect]
     Active Substance: RANITIDINE
     Indication: Product used for unknown indication
     Dosage: UNK(ZANTAC)
     Route: 065
     Dates: start: 2007, end: 2019
  2. RANITIDINE [Suspect]
     Active Substance: RANITIDINE
     Dosage: UNK (GENERIC RANITIDINE)
     Route: 065
     Dates: start: 2007, end: 2019

REACTIONS (1)
  - Breast cancer [Unknown]

NARRATIVE: CASE EVENT DATE: 20200101
